FAERS Safety Report 18543595 (Version 3)
Quarter: 2021Q1

REPORT INFORMATION
  Report Type: Spontaneous
  Country: US (occurrence: US)
  Receive Date: 20201124
  Receipt Date: 20210209
  Transmission Date: 20210419
  Serious: Yes (Other)
  Sender: FDA-Public Use
  Company Number: US-SA-2020SA331636

PATIENT
  Age: 36 Year
  Sex: Female

DRUGS (1)
  1. AUBAGIO [Suspect]
     Active Substance: TERIFLUNOMIDE
     Indication: MULTIPLE SCLEROSIS
     Dosage: 14 MG, QD
     Route: 048
     Dates: start: 20200930

REACTIONS (11)
  - Influenza [Unknown]
  - Blood pressure increased [Unknown]
  - Ocular discomfort [Unknown]
  - Eye pain [Recovered/Resolved]
  - Dyspnoea [Unknown]
  - Respiratory tract infection [Unknown]
  - Dizziness [Unknown]
  - Malaise [Unknown]
  - Nasopharyngitis [Unknown]
  - Vision blurred [Unknown]
  - Nausea [Unknown]

NARRATIVE: CASE EVENT DATE: 2020
